FAERS Safety Report 13437622 (Version 1)
Quarter: 2017Q2

REPORT INFORMATION
  Report Type: Spontaneous
  Country: US (occurrence: US)
  Receive Date: 20170413
  Receipt Date: 20170413
  Transmission Date: 20170830
  Serious: No
  Sender: FDA-Public Use
  Company Number: US-SA-2016SA211532

PATIENT
  Age: 9 Year
  Sex: Male
  Weight: 39 kg

DRUGS (1)
  1. ALLEGRA-D 24 HOUR [Suspect]
     Active Substance: FEXOFENADINE HYDROCHLORIDE\PSEUDOEPHEDRINE HYDROCHLORIDE
     Indication: NASAL CONGESTION
     Dosage: GETTING THESE PRODUCTS FOR ABOUT A YEAR NOW, EVERY DAY.
     Route: 048

REACTIONS (3)
  - Nasal dryness [Unknown]
  - Dry skin [Unknown]
  - Product use issue [Unknown]
